FAERS Safety Report 13450303 (Version 2)
Quarter: 2017Q3

REPORT INFORMATION
  Report Type: Spontaneous
  Country: IT (occurrence: IT)
  Receive Date: 20170417
  Receipt Date: 20170713
  Transmission Date: 20171127
  Serious: Yes (Hospitalization)
  Sender: FDA-Public Use
  Company Number: IT-BAXTER-2017BAX016176

PATIENT
  Age: 30 Year
  Sex: Female
  Weight: 60 kg

DRUGS (6)
  1. METRONIDAZOLO BAXTER S.P.A. [Suspect]
     Active Substance: METRONIDAZOLE
     Indication: HYPERPYREXIA
     Route: 042
     Dates: start: 20170322, end: 20170327
  2. CREON [Concomitant]
     Active Substance: PANCRELIPASE AMYLASE\PANCRELIPASE LIPASE\PANCRELIPASE PROTEASE
     Indication: PANCREATITIS
     Route: 048
     Dates: start: 20170322, end: 20170322
  3. PLASIL [Concomitant]
     Active Substance: METOCLOPRAMIDE HYDROCHLORIDE
     Indication: NAUSEA
     Dosage: STRENGTH: 10 MG/2 ML
     Route: 042
     Dates: start: 20170322, end: 20170322
  4. SODIO CLORURO BAXTER S.P.A. 0,9% [Suspect]
     Active Substance: SODIUM CHLORIDE
     Indication: MEDICATION DILUTION
     Dosage: ADMINISTERED IN 1 HOUR; COMPOUNDED WITH ZERBAXA
     Route: 042
     Dates: start: 20170322, end: 20170327
  5. TARGOSID [Suspect]
     Active Substance: TEICOPLANIN
     Indication: HYPERPYREXIA
     Route: 042
     Dates: start: 20170322, end: 20170327
  6. ZERBAXA [Suspect]
     Active Substance: CEFTOLOZANE SULFATE\TAZOBACTAM SODIUM
     Indication: HYPERPYREXIA
     Dosage: STRENGTH: 1 G/0.5 G; ADMINISTERED IN 1 HOUR/3 TIMES A DAY; COMPOUNDED WITH NACL
     Route: 042
     Dates: start: 20170322, end: 20170327

REACTIONS (3)
  - Drug interaction [Not Recovered/Not Resolved]
  - Pruritus [Not Recovered/Not Resolved]
  - Erythema [Not Recovered/Not Resolved]

NARRATIVE: CASE EVENT DATE: 20170326
